FAERS Safety Report 26210484 (Version 1)
Quarter: 2025Q4

REPORT INFORMATION
  Report Type: Spontaneous
  Country: EG (occurrence: EG)
  Receive Date: 20251229
  Receipt Date: 20251229
  Transmission Date: 20260118
  Serious: Yes (Life-Threatening)
  Sender: NOVO NORDISK
  Company Number: EG-NOVOPROD-1593014

PATIENT
  Age: 836 Month
  Sex: Female

DRUGS (1)
  1. INSULIN HUMAN [Suspect]
     Active Substance: INSULIN HUMAN
     Indication: Diabetes mellitus
     Dosage: 25 U MORNING, 15 U AT NIGHT
     Route: 058

REACTIONS (3)
  - Diabetic coma [Recovered/Resolved]
  - Device issue [Unknown]
  - Drug dose omission by device [Recovered/Resolved]
